FAERS Safety Report 9638250 (Version 1)
Quarter: 2013Q4

REPORT INFORMATION
  Report Type: Spontaneous
  Country: US (occurrence: US)
  Receive Date: 20131022
  Receipt Date: 20131022
  Transmission Date: 20140711
  Serious: No
  Sender: FDA-Public Use
  Company Number: US-PFIZER INC-2013300697

PATIENT
  Age: 57 Year
  Sex: Female

DRUGS (5)
  1. LIPITOR [Suspect]
     Dosage: UNK
  2. HYDROCHLOROTHIAZIDE/LISINOPRIL [Suspect]
     Dosage: UNK
  3. PROZAC [Suspect]
     Dosage: UNK
  4. TRICOR [Suspect]
     Dosage: UNK
  5. DEPAKOTE [Suspect]
     Dosage: UNK

REACTIONS (1)
  - Drug hypersensitivity [Unknown]
